FAERS Safety Report 6156935-5 (Version None)
Quarter: 2009Q2

REPORT INFORMATION
  Report Type: 
  Country: None (occurrence: None)
  Receive Date: 20090416
  Receipt Date: 20090407
  Transmission Date: 20091009
  Serious: Yes (Hospitalization)
  Sender: FDA-Public Use
  Company Number: B0563140A

PATIENT
  Sex: Male

DRUGS (2)
  1. ABACAVIR SULFATE/LAMIVUDINE [Suspect]
     Indication: HIV INFECTION
     Dosage: 1TAB PER DAY
     Route: 048
     Dates: start: 20050101
  2. VIRAMUNE [Suspect]
     Indication: HIV INFECTION
     Dosage: 1UNIT TWICE PER DAY
     Route: 048
     Dates: start: 20050101

REACTIONS (1)
  - PHLEBITIS [None]
